FAERS Safety Report 21202668 (Version 1)
Quarter: 2022Q3

REPORT INFORMATION
  Report Type: Spontaneous
  Country: IT (occurrence: IT)
  Receive Date: 20220811
  Receipt Date: 20220811
  Transmission Date: 20221026
  Serious: Yes (Death, Other)
  Sender: FDA-Public Use
  Company Number: IT-GLAXOSMITHKLINE-ITCH2022EME028172

PATIENT

DRUGS (10)
  1. DICLOFENAC DIETHYLAMINE [Suspect]
     Active Substance: DICLOFENAC DIETHYLAMINE
     Indication: Back pain
     Dosage: UNK
     Dates: start: 2022
  2. DICLOFENAC DIETHYLAMINE [Suspect]
     Active Substance: DICLOFENAC DIETHYLAMINE
     Indication: Pain in extremity
  3. LEVACECARNINE HYDROCHLORIDE [Suspect]
     Active Substance: LEVACECARNINE HYDROCHLORIDE
     Indication: Back pain
     Dosage: UNK, QD
     Route: 042
     Dates: start: 20220729
  4. LEVACECARNINE HYDROCHLORIDE [Suspect]
     Active Substance: LEVACECARNINE HYDROCHLORIDE
     Indication: Pain in extremity
  5. BETAMETHASONE SODIUM PHOSPHATE [Suspect]
     Active Substance: BETAMETHASONE SODIUM PHOSPHATE
     Indication: Back pain
     Dosage: UNK, QD
     Route: 042
     Dates: start: 20220729
  6. BETAMETHASONE SODIUM PHOSPHATE [Suspect]
     Active Substance: BETAMETHASONE SODIUM PHOSPHATE
     Indication: Pain in extremity
  7. ORUDIS [Suspect]
     Active Substance: KETOPROFEN
     Indication: Back pain
     Dosage: UNK, QD
     Route: 042
     Dates: start: 20020729, end: 2022
  8. ORUDIS [Suspect]
     Active Substance: KETOPROFEN
     Indication: Pain in extremity
  9. THIOCOLCHICOSIDE [Suspect]
     Active Substance: THIOCOLCHICOSIDE
     Indication: Back pain
     Dosage: UNK, QD
     Route: 042
     Dates: start: 20220729
  10. THIOCOLCHICOSIDE [Suspect]
     Active Substance: THIOCOLCHICOSIDE
     Indication: Pain in extremity

REACTIONS (2)
  - Death [Fatal]
  - Cardiac arrest [Fatal]
